FAERS Safety Report 8840006 (Version 2)
Quarter: 2012Q4

REPORT INFORMATION
  Report Type: Report from Study
  Country: DE (occurrence: DE)
  Receive Date: 20121015
  Receipt Date: 20121019
  Transmission Date: 20130627
  Serious: Yes (Death, Other)
  Sender: FDA-Public Use
  Company Number: DE-PFIZER INC-HQ6236522JAN2001

PATIENT
  Age: 68 Year
  Sex: Female
  Weight: 70 kg

DRUGS (32)
  1. TAZOBAC [Suspect]
     Indication: SEPSIS
     Dosage: Unknown
     Route: 042
     Dates: start: 19981231, end: 19981231
  2. DILZEM [Suspect]
     Dosage: Unknown
     Route: 048
     Dates: start: 19981211, end: 19981217
  3. DILZEM [Suspect]
     Dosage: Unknown
     Route: 048
     Dates: start: 19981222, end: 19981231
  4. HEPARIN SODIUM [Suspect]
     Indication: THROMBOSIS PROPHYLAXIS
     Dosage: Unknown
     Route: 058
     Dates: start: 19981210, end: 19981212
  5. HEPARIN SODIUM [Suspect]
     Dosage: Unknown
     Route: 042
     Dates: start: 19981216, end: 19981217
  6. HEPARIN SODIUM [Suspect]
     Dosage: UNK
     Route: 042
     Dates: start: 19981221
  7. HOPS\MELISSA OFFICINALIS\VALERIAN EXTRACT [Suspect]
     Indication: TREMOR
     Dosage: Unknown
     Route: 048
     Dates: start: 19981225, end: 19981225
  8. DIFLUCAN [Suspect]
     Indication: SEPSIS
     Dosage: 200 mg, times one dose
     Route: 048
     Dates: start: 19981223, end: 19981223
  9. TRIMIPRAMINE MALEATE [Suspect]
     Indication: TREMOR
     Dosage: 50 mg, 1x/day
     Route: 048
     Dates: start: 19981203, end: 19981207
  10. HYDROCHLOROTHIAZIDE [Suspect]
     Indication: HYPERTENSION
     Dosage: UNK
     Route: 048
     Dates: start: 19981203, end: 19981207
  11. HYDROCHLOROTHIAZIDE [Suspect]
     Dosage: UNK
     Route: 048
     Dates: start: 19981213, end: 19981217
  12. BENAZEPRIL [Suspect]
     Indication: HYPERTENSION
     Dosage: once daily
     Route: 048
     Dates: start: 19981203, end: 19981207
  13. BENAZEPRIL [Suspect]
     Dosage: once daily
     Route: 048
     Dates: start: 19981213, end: 19981217
  14. ROCEPHIN [Suspect]
     Indication: SEPSIS
     Dosage: 2 g, daily
     Route: 042
     Dates: start: 19981207, end: 19981215
  15. DORMICUM [Suspect]
     Indication: TREMOR
     Dosage: Unknown
     Route: 048
     Dates: start: 19981210, end: 19981210
  16. DORMICUM [Suspect]
     Dosage: Unknown
     Route: 048
     Dates: start: 19981218, end: 19981218
  17. ZIENAM [Suspect]
     Indication: SEPSIS
     Dosage: 500 mg, 3x/day
     Route: 042
     Dates: start: 19981217, end: 19981218
  18. ZIENAM [Suspect]
     Dosage: 500 mg, 3x/day
     Route: 042
     Dates: start: 19981221, end: 19981230
  19. KALINOR [Suspect]
     Indication: HYPOKALAEMIA
     Dosage: once daily
     Route: 048
     Dates: start: 19981218, end: 19981218
  20. ALBUMIN HUMAN [Suspect]
     Dosage: Unknown
     Route: 042
     Dates: start: 19981220, end: 19981220
  21. ALBUMIN HUMAN [Suspect]
     Dosage: Unknown
     Route: 042
     Dates: start: 19981222, end: 19981225
  22. KONAKION [Suspect]
     Dosage: once daily
     Route: 042
     Dates: start: 19981221, end: 19981222
  23. RESONIUM A [Suspect]
     Indication: HYPERKALAEMIA
     Dosage: Unknown
     Route: 048
     Dates: start: 19981221, end: 19981223
  24. ERYTHROMYCIN [Suspect]
     Indication: SEPSIS
     Dosage: 500 mg, 4x/day
     Route: 042
     Dates: start: 19981221, end: 19981227
  25. LASIX [Suspect]
     Indication: CARDIAC FAILURE
     Dosage: Unknown
     Route: 042
     Dates: start: 19981221, end: 19981231
  26. VANCOMYCIN [Suspect]
     Indication: SEPSIS
     Dosage: Unknown
     Route: 042
     Dates: start: 19981221, end: 19981223
  27. VANCOMYCIN [Suspect]
     Dosage: Unknown
     Route: 042
     Dates: start: 19981229, end: 19981230
  28. DIGIMERCK [Suspect]
     Indication: CARDIAC FAILURE
     Dosage: once daily
     Route: 048
     Dates: start: 19981222, end: 19981231
  29. DUSODRIL [Suspect]
     Dosage: 100 mg, 3x/day
     Route: 048
     Dates: start: 19981223, end: 19981229
  30. RULID [Suspect]
     Indication: SEPSIS
     Dosage: 30 mg, 1x/day
     Route: 048
     Dates: start: 19981227, end: 19981231
  31. ANTRA [Suspect]
     Indication: PROPHYLAXIS
     Dosage: 20 mg, times one dose
     Route: 048
     Dates: start: 19981231, end: 19981231
  32. ANTRA [Suspect]
     Indication: ULCER

REACTIONS (3)
  - Sepsis [Fatal]
  - Stevens-Johnson syndrome [Unknown]
  - Toxic epidermal necrolysis [Unknown]
